FAERS Safety Report 19847377 (Version 1)
Quarter: 2021Q3

REPORT INFORMATION
  Report Type: Spontaneous
  Country: DE (occurrence: DE)
  Receive Date: 20210917
  Receipt Date: 20210917
  Transmission Date: 20211014
  Serious: Yes (Hospitalization)
  Sender: FDA-Public Use
  Company Number: DE-TEVA-2021-DE-1952454

PATIENT
  Age: 82 Year
  Sex: Female
  Weight: 115 kg

DRUGS (7)
  1. DULOXETIN [Suspect]
     Active Substance: DULOXETINE
     Dosage: 20 MG, AS NEEDED
     Route: 048
  2. BACLOFEN. [Concomitant]
     Active Substance: BACLOFEN
     Dosage: 25 MILLIGRAM DAILY; 1?0?0?0
     Route: 048
  3. GABAPENTIN. [Concomitant]
     Active Substance: GABAPENTIN
     Dosage: 1800 MILLIGRAM DAILY; 1?1?1?0
     Route: 048
  4. BACLOFEN. [Concomitant]
     Active Substance: BACLOFEN
     Dosage: 10 MILLIGRAM DAILY; 0?0?1?0
     Route: 048
  5. RIVAROXABAN [Interacting]
     Active Substance: RIVAROXABAN
     Dosage: 15 MILLIGRAM DAILY; 1?0?0?0
     Route: 048
  6. RAMIPRIL. [Concomitant]
     Active Substance: RAMIPRIL
     Dosage: 5 MILLIGRAM DAILY; 1?0?0?0
     Route: 048
  7. PANTOPRAZOL [Concomitant]
     Active Substance: PANTOPRAZOLE SODIUM
     Dosage: 40 MILLIGRAM DAILY; 1?0?0?0
     Route: 048

REACTIONS (3)
  - Labelled drug-drug interaction medication error [Unknown]
  - Blood count abnormal [Recovering/Resolving]
  - Dyspnoea [Recovering/Resolving]
